FAERS Safety Report 22613143 (Version 1)
Quarter: 2023Q2

REPORT INFORMATION
  Report Type: Report from Study
  Country: CZ (occurrence: CZ)
  Receive Date: 20230618
  Receipt Date: 20230618
  Transmission Date: 20230721
  Serious: Yes (Death)
  Sender: FDA-Public Use
  Company Number: CZ-ABBVIE-5293045

PATIENT
  Age: 76 Year
  Sex: Male

DRUGS (8)
  1. CARBIDOPA\LEVODOPA [Suspect]
     Active Substance: CARBIDOPA\LEVODOPA
     Indication: Parkinson^s disease
     Dosage: UNIT DOSE 20 MG/1ML, MORNING DOSE 15ML, CONTINUOUS DOSE 6ML/HOUR, EXTRA DOSE 7 ML
     Route: 050
     Dates: start: 20200827
  2. CARBIDOPA\LEVODOPA [Suspect]
     Active Substance: CARBIDOPA\LEVODOPA
     Indication: Parkinson^s disease
     Dosage: UNIT DOSE 20 MG/1ML, MORNING DOSE 15ML, CONTINUOUS DOSE 6ML/HOUR, EXTRA DOSE 7 ML
     Route: 050
  3. CITALOPRAM [Concomitant]
     Active Substance: CITALOPRAM HYDROBROMIDE
     Indication: Depression
     Dosage: FREQUENCY TEXT: HALF OF TABLET IN THE MORNING
     Route: 048
     Dates: start: 20200820
  4. EXELON [Concomitant]
     Active Substance: RIVASTIGMINE TARTRATE
     Indication: Memory impairment
     Dosage: FREQUENCY TEXT: 2 TIMES DAILY
     Route: 048
     Dates: start: 20210930
  5. FOLIC ACID [Concomitant]
     Active Substance: FOLIC ACID
     Indication: Supplementation therapy
     Dosage: FREQUENCY TEXT: 1 TIME ON EVEN DAYS
     Route: 048
     Dates: start: 20200730
  6. CLOZAPINE [Concomitant]
     Active Substance: CLOZAPINE
     Indication: Psychotic disorder
     Dosage: FREQUENCY TEXT: 1-0-0-2
     Route: 048
     Dates: start: 20200617
  7. SINEPAR [Concomitant]
     Indication: Musculoskeletal stiffness
     Dosage: FREQUENCY TEXT: 1 TIME IN THE EVENING
     Route: 048
     Dates: start: 20210702
  8. RIVOTRIL [Concomitant]
     Active Substance: CLONAZEPAM
     Indication: Rapid eye movement sleep behaviour disorder
     Dosage: FREQUENCY TEXT: 0-0-0-2
     Route: 048
     Dates: start: 20210930

REACTIONS (1)
  - Death [Fatal]

NARRATIVE: CASE EVENT DATE: 20230607
